FAERS Safety Report 5858167-4 (Version None)
Quarter: 2008Q3

REPORT INFORMATION
  Report Type: 
  Country: None (occurrence: None)
  Receive Date: 20080826
  Receipt Date: 20080822
  Transmission Date: 20090109
  Serious: Yes (Hospitalization)
  Sender: FDA-Public Use
  Company Number: A0709957A

PATIENT
  Age: 42 Year
  Sex: Male
  Weight: 125 kg

DRUGS (2)
  1. AVANDIA [Suspect]
     Dosage: 8MG PER DAY
     Route: 048
     Dates: start: 20040201, end: 20070101
  2. METFORMIN HCL [Concomitant]
     Dates: start: 19950101

REACTIONS (3)
  - CARDIAC DISORDER [None]
  - MYOCARDIAL INFARCTION [None]
  - PAIN [None]
